FAERS Safety Report 4818593-9 (Version None)
Quarter: 2005Q4

REPORT INFORMATION
  Report Type: 
  Country: None (occurrence: None)
  Receive Date: 20051025
  Receipt Date: 20051006
  Transmission Date: 20060501
  Serious: Yes (Hospitalization)
  Sender: FDA-Public Use
  Company Number: 200410823BCA

PATIENT
  Age: 34 Year
  Sex: Female
  Weight: 80 kg

DRUGS (15)
  1. GAMUNEX [Suspect]
     Indication: TRANSPLANT REJECTION
     Dosage: INTRAVENOUS
     Route: 042
     Dates: start: 20041005
  2. GAMUNEX [Suspect]
     Indication: TRANSPLANT REJECTION
     Dosage: INTRAVENOUS
     Route: 042
     Dates: start: 20041006
  3. GAMUNEX [Suspect]
     Indication: TRANSPLANT REJECTION
     Dosage: INTRAVENOUS
     Route: 042
     Dates: start: 20041007
  4. GAMUNEX [Suspect]
     Indication: TRANSPLANT REJECTION
     Dosage: INTRAVENOUS
     Route: 042
     Dates: start: 20041008
  5. GAMUNEX [Suspect]
     Indication: TRANSPLANT REJECTION
     Dosage: INTRAVENOUS
     Route: 042
     Dates: start: 20041010
  6. GAMUNEX [Suspect]
  7. GAMUNEX [Suspect]
  8. GAMUNEX [Suspect]
  9. CYCLOSPORINE [Concomitant]
  10. LOPRESSOR [Concomitant]
  11. CELLCEPT [Concomitant]
  12. NIFEDIPINE [Concomitant]
  13. PREDNISONE [Concomitant]
  14. VALTREX [Concomitant]
  15. ARANESP [Concomitant]

REACTIONS (3)
  - BLOOD LACTATE DEHYDROGENASE DECREASED [None]
  - HAEMOLYTIC ANAEMIA [None]
  - RED BLOOD CELL AGGLUTINATION PRESENT [None]
